FAERS Safety Report 19980129 (Version 1)
Quarter: 2021Q4

REPORT INFORMATION
  Report Type: Spontaneous
  Country: JO (occurrence: JO)
  Receive Date: 20211021
  Receipt Date: 20211021
  Transmission Date: 20220303
  Serious: Yes (Hospitalization, Other)
  Sender: FDA-Public Use
  Company Number: JO-MLMSERVICE-20211005-3147600-1

PATIENT
  Age: 12 Year
  Sex: Male

DRUGS (1)
  1. VANCOMYCIN [Suspect]
     Active Substance: VANCOMYCIN
     Indication: Arthritis bacterial
     Route: 042

REACTIONS (2)
  - Hypokalaemia [Recovered/Resolved]
  - Nephropathy toxic [Recovered/Resolved]
